FAERS Safety Report 4743803-6 (Version None)
Quarter: 2005Q3

REPORT INFORMATION
  Report Type: 
  Country: None (occurrence: None)
  Receive Date: 20050809
  Receipt Date: 20050727
  Transmission Date: 20060218
  Serious: Yes (Disabling)
  Sender: FDA-Public Use
  Company Number: 2005FR-00155

PATIENT
  Age: 83 Year
  Sex: Female

DRUGS (1)
  1. RANITIDINE HCL [Suspect]
     Dosage: 150 MG, BID, ORAL
     Route: 048
     Dates: start: 20041201

REACTIONS (1)
  - CHOLESTASIS [None]
